FAERS Safety Report 9330030 (Version 1)
Quarter: 2013Q2

REPORT INFORMATION
  Report Type: Spontaneous
  Country: US (occurrence: US)
  Receive Date: 20130604
  Receipt Date: 20130604
  Transmission Date: 20140414
  Serious: No
  Sender: FDA-Public Use
  Company Number: US-SANOFI-AVENTIS-2012SA056941

PATIENT
  Age: 34 Year
  Sex: Male
  Weight: 118 kg

DRUGS (1)
  1. LANTUS [Suspect]
     Indication: TYPE 2 DIABETES MELLITUS
     Dosage: UPTO 50 UNITS A DAY
     Route: 058

REACTIONS (2)
  - Insulin resistance [Unknown]
  - Drug ineffective [Unknown]
